FAERS Safety Report 17003765 (Version 5)
Quarter: 2019Q4

REPORT INFORMATION
  Report Type: Spontaneous
  Country: US (occurrence: US)
  Receive Date: 20191107
  Receipt Date: 20191128
  Transmission Date: 20200122
  Serious: Yes (Hospitalization, Other)
  Sender: FDA-Public Use
  Company Number: US-AMGEN-USASP2019182231

PATIENT
  Age: 58 Year
  Sex: Female
  Weight: 113.4 kg

DRUGS (1)
  1. ENBREL [Suspect]
     Active Substance: ETANERCEPT
     Indication: RHEUMATOID ARTHRITIS
     Dosage: 50 MILLIGRAM, QWK
     Route: 065
     Dates: start: 2018, end: 20190921

REACTIONS (7)
  - Osteoporosis [Unknown]
  - Condition aggravated [Unknown]
  - Drug ineffective [Unknown]
  - Hypertension [Unknown]
  - Joint lock [Unknown]
  - Pain [Unknown]
  - Urinary incontinence [Unknown]

NARRATIVE: CASE EVENT DATE: 201909
